FAERS Safety Report 10059501 (Version 1)
Quarter: 2014Q2

REPORT INFORMATION
  Report Type: Spontaneous
  Country: US (occurrence: US)
  Receive Date: 20140404
  Receipt Date: 20140404
  Transmission Date: 20141212
  Serious: No
  Sender: FDA-Public Use
  Company Number: US-GLAXOSMITHKLINE-A1028782A

PATIENT
  Age: 67 Year
  Sex: Female

DRUGS (1)
  1. ALLI [Suspect]
     Indication: WEIGHT DECREASED
     Dates: start: 20130613, end: 20130619

REACTIONS (13)
  - Joint swelling [Recovered/Resolved]
  - Peripheral swelling [Recovered/Resolved]
  - Gout [Unknown]
  - Pain in extremity [Recovered/Resolved]
  - Musculoskeletal pain [Recovered/Resolved]
  - Movement disorder [Recovered/Resolved]
  - Arthralgia [Recovered/Resolved]
  - Musculoskeletal stiffness [Recovered/Resolved]
  - Faeces discoloured [Recovered/Resolved]
  - Constipation [Recovered/Resolved]
  - Joint stiffness [Not Recovered/Not Resolved]
  - Pain [Unknown]
  - Frequent bowel movements [Recovered/Resolved]
